FAERS Safety Report 16695265 (Version 1)
Quarter: 2019Q3

REPORT INFORMATION
  Report Type: Spontaneous
  Country: FR (occurrence: FR)
  Receive Date: 20190813
  Receipt Date: 20190813
  Transmission Date: 20191004
  Serious: Yes (Hospitalization, Other)
  Sender: FDA-Public Use
  Company Number: FR-ACCORD-150615

PATIENT
  Age: 15 Year
  Sex: Male
  Weight: 63 kg

DRUGS (4)
  1. DOCETAXEL ACCORD [Suspect]
     Active Substance: DOCETAXEL
     Indication: EWING^S SARCOMA
     Route: 042
     Dates: start: 20190211, end: 20190605
  2. SOLU-MEDROL [Concomitant]
     Active Substance: METHYLPREDNISOLONE SODIUM SUCCINATE
  3. ZOPHREN [Concomitant]
     Active Substance: ONDANSETRON
  4. GEMCITABINE SANDOZ [Suspect]
     Active Substance: GEMCITABINE\GEMCITABINE HYDROCHLORIDE
     Indication: EWING^S SARCOMA
     Dosage: STRENGTH: 40 MG/ML
     Route: 042
     Dates: start: 20190204, end: 20190626

REACTIONS (6)
  - Capillary leak syndrome [Recovering/Resolving]
  - Onycholysis [Not Recovered/Not Resolved]
  - Nail discomfort [Not Recovered/Not Resolved]
  - Palmar-plantar erythrodysaesthesia syndrome [Not Recovered/Not Resolved]
  - Off label use [Unknown]
  - Nail pigmentation [Not Recovered/Not Resolved]

NARRATIVE: CASE EVENT DATE: 20190528
